FAERS Safety Report 5365017-1 (Version None)
Quarter: 2007Q2

REPORT INFORMATION
  Report Type: 
  Country: None (occurrence: None)
  Receive Date: 20070604
  Receipt Date: 20070411
  Transmission Date: 20071010
  Serious: Yes (Hospitalization)
  Sender: FDA-Public Use
  Company Number: 2007-0011856

PATIENT
  Age: 81 Year
  Sex: Male

DRUGS (4)
  1. TRUVADA [Suspect]
     Indication: HIV INFECTION
     Dosage: 1 DOSAGE FORMS, 1 IN 1 D, ORAL
     Route: 048
     Dates: start: 20060808, end: 20060830
  2. LEXIVA [Concomitant]
  3. RITONAVIR [Concomitant]
  4. DIGOXIN [Concomitant]

REACTIONS (2)
  - DIARRHOEA [None]
  - VOMITING [None]
